FAERS Safety Report 19939663 (Version 1)
Quarter: 2021Q4

REPORT INFORMATION
  Report Type: Other
  Country: FR (occurrence: FR)
  Receive Date: 20211012
  Receipt Date: 20211012
  Transmission Date: 20220303
  Serious: Yes (Other)
  Sender: FDA-Public Use
  Company Number: FR-CELLTRION INC.-2021FR013569

PATIENT

DRUGS (3)
  1. TRASTUZUMAB [Suspect]
     Active Substance: TRASTUZUMAB
     Indication: Breast cancer
     Dosage: CHEMOTHERAPY PROTOCOL ON 18 JUNE 2021, STARTING PERTUZUMAB /TRASTUZUMAB / PACLITAXEL
     Route: 065
     Dates: start: 20210618
  2. PACLITAXEL [Suspect]
     Active Substance: PACLITAXEL
     Indication: Breast cancer
     Dosage: PACLITAXEL 100MG/16.7ML FRESENIUS KABI CHEMOTHERAPY PROTOCOL ON 18 JUNE 2021
     Route: 065
     Dates: start: 20210618
  3. PERTUZUMAB [Suspect]
     Active Substance: PERTUZUMAB
     Indication: Breast cancer
     Dosage: CHEMOTHERAPY PROTOCOL ON 18 JUNE 2021, STARTING PERTUZUMAB / TRASTUZUMAB / PACLITAXEL
     Route: 065
     Dates: start: 20210618

REACTIONS (1)
  - Neuropathy peripheral [Unknown]
